FAERS Safety Report 8267880-3 (Version None)
Quarter: 2012Q2

REPORT INFORMATION
  Report Type: 
  Country: None (occurrence: None)
  Receive Date: 20120409
  Receipt Date: 20120331
  Transmission Date: 20120825
  Serious: Yes (Death, Other)
  Sender: FDA-Public Use
  Company Number: US-BRISTOL-MYERS SQUIBB COMPANY-16494700

PATIENT
  Age: 19 Year
  Sex: Female
  Weight: 44 kg

DRUGS (3)
  1. ETOPOSIDE [Suspect]
  2. IPILIMUMAB [Suspect]
     Indication: BONE SARCOMA
     Dosage: 10MG/KG IV OVER 90 MIN ON DAY 1 LAST DOSE ON  18OCT2011; 470 MG
     Route: 042
     Dates: start: 20110810
  3. IFOSFAMIDE [Suspect]

REACTIONS (2)
  - NEOPLASM MALIGNANT [None]
  - WHITE BLOOD CELL COUNT DECREASED [None]
